FAERS Safety Report 9641058 (Version 2)
Quarter: 2014Q1

REPORT INFORMATION
  Report Type: Spontaneous
  Country: FR (occurrence: FR)
  Receive Date: 20131023
  Receipt Date: 20140116
  Transmission Date: 20141002
  Serious: Yes (Other)
  Sender: FDA-Public Use
  Company Number: FR-ABBVIE-13P-056-1159334-00

PATIENT
  Age: 44 Year
  Sex: Male
  Weight: 65 kg

DRUGS (5)
  1. HUMIRA [Suspect]
     Indication: CROHN^S DISEASE
     Dates: start: 20130812, end: 20130812
  2. HUMIRA [Suspect]
  3. HUMIRA [Suspect]
     Dates: end: 20131015
  4. HUMIRA [Suspect]
     Dates: start: 201311
  5. IMUREL [Suspect]
     Indication: CROHN^S DISEASE
     Route: 048
     Dates: start: 2012, end: 20131015

REACTIONS (2)
  - Microcytic anaemia [Unknown]
  - Hyperthyroidism [Unknown]
